FAERS Safety Report 5650469-X (Version None)
Quarter: 2008Q1

REPORT INFORMATION
  Report Type: 
  Country: None (occurrence: None)
  Receive Date: 20080304
  Receipt Date: 20080304
  Transmission Date: 20080703
  Serious: Yes (Hospitalization)
  Sender: FDA-Public Use
  Company Number: None

PATIENT
  Sex: Male
  Weight: 93 kg

DRUGS (4)
  1. BEVACIZUMAB (RHUMAB VEGF) [Suspect]
     Dosage: 1920 MG
     Dates: end: 20080220
  2. FLUOROURACIL [Suspect]
     Dosage: 23968 MG
     Dates: end: 20080220
  3. LEUCOVORIN CALCIUM [Suspect]
     Dosage: 3424 MG
     Dates: end: 20080220
  4. ELOXATIN [Suspect]
     Dosage: 728 MG
     Dates: end: 20080220

REACTIONS (10)
  - ANORECTAL DISCOMFORT [None]
  - ATRIAL FIBRILLATION [None]
  - EPISTAXIS [None]
  - HEART RATE ABNORMAL [None]
  - INTERNATIONAL NORMALISED RATIO INCREASED [None]
  - PAIN [None]
  - PROCTALGIA [None]
  - PURULENCE [None]
  - RECTAL HAEMORRHAGE [None]
  - ULCER [None]
